FAERS Safety Report 24693341 (Version 1)
Quarter: 2024Q4

REPORT INFORMATION
  Report Type: Report from Study
  Country: US (occurrence: US)
  Receive Date: 20241203
  Receipt Date: 20241203
  Transmission Date: 20250115
  Serious: Yes (Other)
  Sender: ABBVIE
  Company Number: US-ABBVIE-6017946

PATIENT
  Age: 71 Year
  Sex: Female
  Weight: 80.739 kg

DRUGS (2)
  1. SKYRIZI [Suspect]
     Active Substance: RISANKIZUMAB-RZAA
     Indication: Crohn^s disease
     Route: 058
     Dates: start: 202211
  2. ESTRADIOL [Concomitant]
     Active Substance: ESTRADIOL
     Indication: Urinary tract infection

REACTIONS (7)
  - Cystocele [Recovered/Resolved]
  - Gastrointestinal pain [Recovered/Resolved]
  - Diverticulitis [Recovered/Resolved]
  - Blood urine present [Unknown]
  - Escherichia infection [Recovered/Resolved]
  - Urinary tract infection [Recovered/Resolved]
  - Faeces discoloured [Recovered/Resolved]

NARRATIVE: CASE EVENT DATE: 20231001
